FAERS Safety Report 5522313-2 (Version None)
Quarter: 2007Q4

REPORT INFORMATION
  Report Type: 
  Country: None (occurrence: None)
  Receive Date: 20071120
  Receipt Date: 20071101
  Transmission Date: 20080405
  Serious: Yes (Other)
  Sender: FDA-Public Use
  Company Number: AU-ASTRAZENECA-2007AP07318

PATIENT
  Age: 67 Year
  Sex: Female

DRUGS (3)
  1. SEROQUEL [Suspect]
     Indication: SLEEP DISORDER
     Route: 048
  2. NOLVADEX [Suspect]
     Indication: BREAST CANCER
     Route: 048
  3. EFFEXOR [Concomitant]

REACTIONS (8)
  - AMNESIA [None]
  - ARTHRALGIA [None]
  - DEPRESSED LEVEL OF CONSCIOUSNESS [None]
  - DIZZINESS [None]
  - MUSCLE SPASMS [None]
  - PALPITATIONS [None]
  - PRURITUS [None]
  - SLEEP DISORDER [None]
